FAERS Safety Report 7481354-9 (Version None)
Quarter: 2011Q2

REPORT INFORMATION
  Report Type: 
  Country: None (occurrence: None)
  Receive Date: 20110516
  Receipt Date: 20110511
  Transmission Date: 20111010
  Serious: Yes (Other)
  Sender: FDA-Public Use
  Company Number: JP-SANOFI-AVENTIS-2011SA029074

PATIENT
  Age: 62 Year
  Sex: Male

DRUGS (2)
  1. AMARYL [Suspect]
     Route: 048
     Dates: start: 20100501, end: 20100601
  2. ALL OTHER THERAPEUTIC PRODUCTS [Suspect]

REACTIONS (2)
  - PYREXIA [None]
  - MALAISE [None]
